FAERS Safety Report 11767430 (Version 1)
Quarter: 2015Q4

REPORT INFORMATION
  Report Type: Spontaneous
  Country: US (occurrence: None)
  Receive Date: 20151120
  Receipt Date: 20151120
  Transmission Date: 20160304
  Serious: Yes (Other)
  Sender: FDA-Public Use
  Company Number: None

PATIENT
  Age: 37 Year
  Sex: Male
  Weight: 61.24 kg

DRUGS (4)
  1. MULTIVITAMIN WITH MINERALS [Concomitant]
     Active Substance: MINERALS\VITAMINS
  2. CHLORHEXIDINE GLUCONATE. [Suspect]
     Active Substance: CHLORHEXIDINE GLUCONATE
     Indication: INFECTION PROPHYLAXIS
     Route: 048
     Dates: start: 20151114, end: 20151119
  3. CHLORHEXIDINE GLUCONATE. [Suspect]
     Active Substance: CHLORHEXIDINE GLUCONATE
     Indication: TOOTH EXTRACTION
     Route: 048
     Dates: start: 20151114, end: 20151119
  4. 2000 IU VITAMIN D3 [Concomitant]

REACTIONS (4)
  - Thermal burn [None]
  - Tongue disorder [None]
  - Induration [None]
  - Ageusia [None]

NARRATIVE: CASE EVENT DATE: 20151115
